FAERS Safety Report 11839254 (Version 1)
Quarter: 2015Q4

REPORT INFORMATION
  Report Type: Spontaneous
  Country: US (occurrence: US)
  Receive Date: 20151216
  Receipt Date: 20151216
  Transmission Date: 20160305
  Serious: No
  Sender: FDA-Public Use
  Company Number: US-TEVA-568912USA

PATIENT
  Age: 65 Year
  Sex: Female

DRUGS (2)
  1. MUPIROCIN 2% [Suspect]
     Active Substance: MUPIROCIN
     Indication: RASH
     Dates: start: 20150602, end: 20150604
  2. MUPIROCIN 2% [Suspect]
     Active Substance: MUPIROCIN
     Indication: HYPERSENSITIVITY

REACTIONS (3)
  - Wound secretion [Unknown]
  - Pruritus [Unknown]
  - Paraesthesia [Unknown]

NARRATIVE: CASE EVENT DATE: 201506
